FAERS Safety Report 9536548 (Version 1)
Quarter: 2013Q3

REPORT INFORMATION
  Report Type: Spontaneous
  Country: US (occurrence: None)
  Receive Date: 20130917
  Receipt Date: 20130917
  Transmission Date: 20140515
  Serious: Yes (Disabling)
  Sender: FDA-Public Use
  Company Number: None

PATIENT
  Age: 31 Year
  Sex: Male
  Weight: 47.63 kg

DRUGS (1)
  1. KEPPRA [Suspect]
     Indication: EPILEPSY
     Dosage: 6 A DAY TWICE DAILY TAKEN BY MOUTH
     Route: 048

REACTIONS (3)
  - Mood altered [None]
  - Feeling cold [None]
  - Pain [None]
